FAERS Safety Report 22060065 (Version 1)
Quarter: 2023Q1

REPORT INFORMATION
  Report Type: Spontaneous
  Country: US (occurrence: None)
  Receive Date: 20230302
  Receipt Date: 20230302
  Transmission Date: 20230417
  Serious: Yes (Other)
  Sender: FDA-Public Use
  Company Number: None

PATIENT
  Age: 47 Year
  Sex: Female
  Weight: 71.5 kg

DRUGS (1)
  1. KORSUVA [Suspect]
     Active Substance: DIFELIKEFALIN ACETATE
     Indication: Pruritus
     Dosage: OTHER FREQUENCY : EVERY DIALYSIS;?
     Route: 040
     Dates: start: 20230222, end: 20230227

REACTIONS (3)
  - Dialysis [None]
  - Incorrect dose administered [None]
  - Blood pressure increased [None]

NARRATIVE: CASE EVENT DATE: 20230224
